FAERS Safety Report 23403094 (Version 1)
Quarter: 2024Q1

REPORT INFORMATION
  Report Type: Spontaneous
  Country: US (occurrence: US)
  Receive Date: 20240116
  Receipt Date: 20240116
  Transmission Date: 20240410
  Serious: Yes (Other)
  Sender: FDA-Public Use
  Company Number: US-STRIDES ARCOLAB LIMITED-2023SP013378

PATIENT
  Age: 1 Decade
  Sex: Female

DRUGS (8)
  1. ACETAZOLAMIDE [Suspect]
     Active Substance: ACETAZOLAMIDE
     Indication: Glaucoma
     Dosage: UNK
     Route: 065
  2. ACETAZOLAMIDE [Suspect]
     Active Substance: ACETAZOLAMIDE
     Indication: Ocular hypertension
     Dosage: UNK
     Route: 048
  3. PREDNISOLONE [Concomitant]
     Active Substance: PREDNISOLONE
     Indication: Iris adhesions
     Dosage: UNK (1%)
     Route: 061
  4. PREDNISOLONE [Concomitant]
     Active Substance: PREDNISOLONE
     Indication: Retinal detachment
     Dosage: 1 MG/KG,PER DAY
     Route: 048
  5. PREDNISOLONE [Concomitant]
     Active Substance: PREDNISOLONE
     Dosage: UNK
     Route: 061
  6. TIMOLOL [Concomitant]
     Active Substance: TIMOLOL
     Indication: Iris adhesions
     Dosage: UNK
     Route: 061
  7. DORZOLAMIDE [Concomitant]
     Active Substance: DORZOLAMIDE
     Indication: Iris adhesions
     Dosage: UNK
     Route: 065
  8. APRACLONIDINE [Concomitant]
     Active Substance: APRACLONIDINE HYDROCHLORIDE
     Indication: Ocular hypertension
     Dosage: UNK
     Route: 065

REACTIONS (1)
  - Drug ineffective for unapproved indication [Unknown]
